FAERS Safety Report 5612943-1 (Version None)
Quarter: 2008Q1

REPORT INFORMATION
  Report Type: 
  Country: None (occurrence: None)
  Receive Date: 20080204
  Receipt Date: 20080123
  Transmission Date: 20080703
  Serious: Yes (Death)
  Sender: FDA-Public Use
  Company Number: CH-PFIZER INC-2008002534

PATIENT
  Sex: Female
  Weight: 57 kg

DRUGS (5)
  1. LYRICA [Suspect]
     Indication: POST HERPETIC NEURALGIA
     Route: 048
     Dates: start: 20051019, end: 20051102
  2. ZOCOR [Concomitant]
  3. KLIOGEST [Concomitant]
  4. RENITEN SUBMITE RPD [Concomitant]
  5. TOREM [Concomitant]

REACTIONS (2)
  - STRESS URINARY INCONTINENCE [None]
  - UTERINE NEOPLASM [None]
